FAERS Safety Report 10161547 (Version 1)
Quarter: 2014Q2

REPORT INFORMATION
  Report Type: Spontaneous
  Country: US (occurrence: US)
  Receive Date: 20140509
  Receipt Date: 20140509
  Transmission Date: 20141212
  Serious: No
  Sender: FDA-Public Use
  Company Number: US-BIOGENIDEC-2014BI041268

PATIENT
  Sex: Female

DRUGS (21)
  1. AVONEX [Suspect]
     Indication: MULTIPLE SCLEROSIS
     Route: 030
     Dates: start: 20090211
  2. ALLEGRA [Concomitant]
  3. BUSPAR [Concomitant]
  4. CARDURA [Concomitant]
  5. CELEBREX [Concomitant]
  6. COLACE [Concomitant]
  7. DETROL [Concomitant]
  8. GABAPENTIN [Concomitant]
  9. FLAGYL [Concomitant]
  10. LIMBITROL [Concomitant]
  11. LIPITOR [Concomitant]
  12. LOMOTIL [Concomitant]
  13. METFORMIN HCL ER (OSM) [Concomitant]
  14. PHENERGAN [Concomitant]
  15. PREVACID [Concomitant]
  16. REGLAN [Concomitant]
  17. TRIMETHOPRIM [Concomitant]
  18. VALIUM [Concomitant]
  19. ZANTAC [Concomitant]
  20. XANAX [Concomitant]
  21. PAXIL [Concomitant]

REACTIONS (1)
  - Injection site bruising [Unknown]
